FAERS Safety Report 7370186-8 (Version None)
Quarter: 2011Q1

REPORT INFORMATION
  Report Type: 
  Country: None (occurrence: None)
  Receive Date: 20110323
  Receipt Date: 20100720
  Transmission Date: 20110831
  Serious: No
  Sender: FDA-Public Use
  Company Number: US-ASTRAZENECA-2010SE33754

PATIENT
  Age: 48 Year
  Sex: Female
  Weight: 53.1 kg

DRUGS (11)
  1. TRAZODONE HCL [Concomitant]
     Route: 048
  2. MULTI-VITAMINS [Concomitant]
     Route: 048
  3. SEROQUEL [Suspect]
     Route: 048
     Dates: start: 20090602
  4. SEROQUEL [Suspect]
     Indication: HYPOMANIA
     Route: 048
     Dates: start: 20090601, end: 20090602
  5. SEROQUEL [Suspect]
     Indication: INSOMNIA
     Route: 048
     Dates: start: 20090601, end: 20090602
  6. SEROQUEL [Suspect]
     Route: 048
     Dates: start: 20090602
  7. CLONAZEPAM [Concomitant]
     Dosage: BID
     Route: 048
  8. LISINOPRIL [Suspect]
     Indication: HYPERTENSION
     Route: 048
  9. VIT B [Concomitant]
     Route: 048
  10. SIMVASTATIN [Concomitant]
     Route: 048
  11. EFFEXOR XR [Concomitant]
     Route: 048

REACTIONS (5)
  - HYPOMANIA [None]
  - BLOOD PRESSURE DECREASED [None]
  - DRUG INEFFECTIVE [None]
  - HYPERSOMNIA [None]
  - DEPRESSION [None]
